FAERS Safety Report 17959958 (Version 1)
Quarter: 2020Q2

REPORT INFORMATION
  Report Type: Spontaneous
  Country: DE (occurrence: DE)
  Receive Date: 20200630
  Receipt Date: 20200630
  Transmission Date: 20200714
  Serious: Yes (Hospitalization)
  Sender: FDA-Public Use
  Company Number: DE-TEVA-2020-DE-1790554

PATIENT
  Age: 78 Year
  Sex: Male
  Weight: 43 kg

DRUGS (8)
  1. CARBOPLATIN. [Suspect]
     Active Substance: CARBOPLATIN
     Dosage: SINCE 08012020 1ST CYCLE
     Dates: start: 20200108
  2. HYDROMORPHON [Concomitant]
     Active Substance: HYDROMORPHONE
     Dosage: 16 MILLIGRAM DAILY; 1-0-1-0
  3. PACLITAXEL. [Suspect]
     Active Substance: PACLITAXEL
     Dosage: SINCE 08012020 1ST CYCLE
     Dates: start: 20200108
  4. PEMBROLIZUMAB. [Suspect]
     Active Substance: PEMBROLIZUMAB
     Dosage: SINCE 08012020 1ST CYCLE
     Dates: start: 20200108
  5. MOVICOL BEUTEL [Concomitant]
     Active Substance: POLYETHYLENE GLYCOL 3350\POTASSIUM CHLORIDE\SODIUM BICARBONATE\SODIUM CHLORIDE
     Dosage: 1 DOSAGE FORMS DAILY; 1-0-0-0
  6. FERRO SANOL COMP 30MG/0.5MG/2.5 MICROGRAM [Concomitant]
     Dosage: 1 DOSAGE FORMS DAILY; 1-0-0-0
  7. METOCLOPRAMID [Concomitant]
     Active Substance: METOCLOPRAMIDE
     Dosage: 30 MILLIGRAM DAILY; 1-1-1-0
  8. PANTOPRAZOL [Concomitant]
     Active Substance: PANTOPRAZOLE SODIUM
     Dosage: 40 MILLIGRAM DAILY; 1-0-0-0

REACTIONS (7)
  - Decreased appetite [Unknown]
  - Haemoptysis [Unknown]
  - Cachexia [Unknown]
  - Pyrexia [Unknown]
  - General physical health deterioration [Unknown]
  - Dysphagia [Unknown]
  - Constipation [Unknown]
